FAERS Safety Report 8476131-6 (Version None)
Quarter: 2012Q2

REPORT INFORMATION
  Report Type: 
  Country: None (occurrence: None)
  Receive Date: 20120628
  Receipt Date: 20120618
  Transmission Date: 20120825
  Serious: Yes (Hospitalization, Other)
  Sender: FDA-Public Use
  Company Number: US-ELI_LILLY_AND_COMPANY-US201007007225

PATIENT
  Sex: Female
  Weight: 65.7 kg

DRUGS (23)
  1. ALPRAZOLAM [Concomitant]
     Dosage: 0.5 MG, 4/D
  2. HYDROCODONE BITARTRATE + ACETAMINOPHEN [Concomitant]
     Dosage: UNK, AS NEEDED
  3. ERGOCALCIFEROL [Concomitant]
     Dosage: 5000 IU, 3/W
  4. METFORMIN HCL [Concomitant]
     Dosage: 1000 MG, QD
  5. HUMIRA [Concomitant]
     Dosage: UNK, WEEKLY (1/W)
  6. FORTEO [Suspect]
     Indication: OSTEOPOROSIS
     Dosage: 20 UG, DAILY (1/D)
     Dates: start: 20100101
  7. LUNESTA [Concomitant]
     Dosage: 3 MG, DAILY (1/D)
  8. PROZAC [Concomitant]
     Dosage: UNK, UNKNOWN
     Route: 065
  9. LISINOPRIL AND HYDROCHLOROTHIAZIDE [Concomitant]
     Dosage: UNK UNK, QD
  10. FORTEO [Suspect]
     Dosage: 20 UG, DAILY (1/D)
  11. NUCYNTA [Concomitant]
     Indication: PAIN
     Dosage: 50 MG, BID
  12. CALCIUM + VITAMIN D [Concomitant]
  13. AVINZA [Concomitant]
  14. HYDROXYZINE HCL [Concomitant]
     Dosage: 25 MG, 3/D
  15. TRILIPIX [Concomitant]
     Dosage: 135 MG, QD
     Route: 065
  16. FORTEO [Suspect]
     Dosage: 20 UG, DAILY (1/D)
  17. XANAX [Concomitant]
     Dosage: UNK
  18. SYNACORT [Concomitant]
     Dosage: UNK
  19. LISINOPRIL [Concomitant]
     Dosage: UNK, DAILY (1/D)
  20. VISTARIL [Concomitant]
     Dosage: UNK, UNKNOWN
     Route: 065
  21. LOVAZA [Concomitant]
     Dosage: UNK UNK, BID
  22. SIMVASTATIN [Concomitant]
     Dosage: UNK UNK, BID
  23. PROMETHAZINE HCL [Concomitant]
     Dosage: UNK, AS NEEDED

REACTIONS (19)
  - BLOOD PRESSURE ABNORMAL [None]
  - DIARRHOEA [None]
  - LACERATION [None]
  - ASTHENIA [None]
  - DRUG DOSE OMISSION [None]
  - HOSPITALISATION [None]
  - PAIN IN EXTREMITY [None]
  - ABDOMINAL DISCOMFORT [None]
  - ARTHRALGIA [None]
  - VOMITING [None]
  - MALAISE [None]
  - DEHYDRATION [None]
  - FALL [None]
  - OVERDOSE [None]
  - MUSCLE INJURY [None]
  - BONE PAIN [None]
  - GROWING PAINS [None]
  - NAIL DISCOMFORT [None]
  - JOINT CREPITATION [None]
